FAERS Safety Report 24218158 (Version 2)
Quarter: 2024Q3

REPORT INFORMATION
  Report Type: Spontaneous
  Country: US (occurrence: US)
  Receive Date: 20240816
  Receipt Date: 20240829
  Transmission Date: 20241017
  Serious: Yes (Hospitalization, Disabling, Other)
  Sender: PFIZER
  Company Number: US-PFIZER INC-PV202400045780

PATIENT
  Age: 28 Year
  Sex: Male
  Weight: 68.04 kg

DRUGS (2)
  1. CHANTIX [Suspect]
     Active Substance: VARENICLINE TARTRATE
     Indication: Smoking cessation therapy
     Dosage: UNK, 3 TIMES A DAY
     Route: 048
  2. CHANTIX [Suspect]
     Active Substance: VARENICLINE TARTRATE
     Dosage: UNK, TWICE A DAY
     Route: 048

REACTIONS (8)
  - Seizure [Recovered/Resolved with Sequelae]
  - Suicidal ideation [Unknown]
  - Pain [Unknown]
  - Emotional distress [Unknown]
  - Nightmare [Unknown]
  - Irritability [Unknown]
  - Loss of personal independence in daily activities [Unknown]
  - Off label use [Unknown]

NARRATIVE: CASE EVENT DATE: 19900415
